FAERS Safety Report 6442787-2 (Version None)
Quarter: 2009Q4

REPORT INFORMATION
  Report Type: 
  Country: None (occurrence: None)
  Receive Date: 20091117
  Receipt Date: 20091109
  Transmission Date: 20100525
  Serious: Yes (Other)
  Sender: FDA-Public Use
  Company Number: US-ROCHE-668037

PATIENT
  Age: 17 Year
  Sex: Male
  Weight: 11.5 kg

DRUGS (2)
  1. TAMIFLU [Suspect]
     Indication: H1N1 INFLUENZA
     Dosage: STRENGTH: 30 MG
     Route: 065
     Dates: start: 20091024, end: 20091104
  2. TAMIFLU [Suspect]
     Dosage: STRENGTH: 60 MG
     Route: 065
     Dates: start: 20091105, end: 20091106

REACTIONS (1)
  - TONGUE DISORDER [None]
